FAERS Safety Report 23758567 (Version 1)
Quarter: 2024Q2

REPORT INFORMATION
  Report Type: Other
  Country: US (occurrence: None)
  Receive Date: 20240418
  Receipt Date: 20240418
  Transmission Date: 20240716
  Serious: No
  Sender: FDA-Public Use
  Company Number: US-ROCHE-3382564

PATIENT
  Age: 62 Year
  Sex: Female

DRUGS (12)
  1. BEVACIZUMAB [Suspect]
     Active Substance: BEVACIZUMAB
     Indication: Age-related macular degeneration
     Route: 050
  2. BEVACIZUMAB [Suspect]
     Active Substance: BEVACIZUMAB
     Indication: Retinal haemorrhage
  3. BEVACIZUMAB [Suspect]
     Active Substance: BEVACIZUMAB
     Indication: Vitreous haemorrhage
  4. BEVACIZUMAB [Suspect]
     Active Substance: BEVACIZUMAB
     Indication: Neovascularisation
  5. ATEZOLIZUMAB [Concomitant]
     Active Substance: ATEZOLIZUMAB
     Route: 065
  6. VANCOMYCIN [Concomitant]
     Active Substance: VANCOMYCIN
     Route: 050
  7. CEFEPIME [Concomitant]
     Active Substance: CEFEPIME HYDROCHLORIDE
     Route: 050
  8. TIMOLOL [Concomitant]
     Active Substance: TIMOLOL
  9. DORZOLAMIDE [Concomitant]
     Active Substance: DORZOLAMIDE
  10. BRIMONIDINE [Concomitant]
     Active Substance: BRIMONIDINE TARTRATE
  11. BIMATOPROST [Concomitant]
     Active Substance: BIMATOPROST
     Dosage: POST BEDTIME
  12. METHAZOLAMIDE [Concomitant]
     Active Substance: METHAZOLAMIDE
     Route: 048

REACTIONS (3)
  - Off label use [Unknown]
  - Off label use [Unknown]
  - No adverse event [Unknown]
